FAERS Safety Report 13072967 (Version 1)
Quarter: 2016Q4

REPORT INFORMATION
  Report Type: Spontaneous
  Country: US (occurrence: US)
  Receive Date: 20161229
  Receipt Date: 20161229
  Transmission Date: 20170207
  Serious: Yes (Hospitalization)
  Sender: FDA-Public Use
  Company Number: US-SA-2016SA097749

PATIENT
  Sex: Female

DRUGS (1)
  1. MOZOBIL [Suspect]
     Active Substance: PLERIXAFOR
     Indication: STEM CELL TRANSPLANT
     Route: 058
     Dates: start: 20160516, end: 20160517

REACTIONS (6)
  - Hypersensitivity [Unknown]
  - Nausea [Unknown]
  - Flushing [Unknown]
  - Swelling face [Unknown]
  - Throat tightness [Unknown]
  - Vomiting [Unknown]

NARRATIVE: CASE EVENT DATE: 20160516
